FAERS Safety Report 19380301 (Version 2)
Quarter: 2021Q2

REPORT INFORMATION
  Report Type: Spontaneous
  Country: ES (occurrence: ES)
  Receive Date: 20210607
  Receipt Date: 20210623
  Transmission Date: 20210717
  Serious: Yes (Other)
  Sender: FDA-Public Use
  Company Number: ES-SA-2021SA185558

PATIENT
  Sex: Male

DRUGS (1)
  1. DUPIXENT [Suspect]
     Active Substance: DUPILUMAB
     Indication: DERMATITIS
     Dosage: 300 MG
     Dates: start: 202008, end: 202105

REACTIONS (18)
  - Eosinophil count increased [Unknown]
  - Choking [Unknown]
  - Dizziness [Unknown]
  - Discomfort [Unknown]
  - Neck pain [Unknown]
  - Secretion discharge [Unknown]
  - Palpitations [Unknown]
  - Hyperchlorhydria [Unknown]
  - Cold sweat [Unknown]
  - Muscle tightness [Unknown]
  - Nervousness [Unknown]
  - Product use in unapproved indication [Unknown]
  - Tachycardia [Recovering/Resolving]
  - Chest discomfort [Unknown]
  - Incorrect dose administered [Unknown]
  - Skin burning sensation [Unknown]
  - Anaphylactic shock [Unknown]
  - Dyspnoea [Unknown]

NARRATIVE: CASE EVENT DATE: 2020
